FAERS Safety Report 6038836-6 (Version None)
Quarter: 2009Q1

REPORT INFORMATION
  Report Type: 
  Country: None (occurrence: None)
  Receive Date: 20090115
  Receipt Date: 20080813
  Transmission Date: 20090719
  Serious: No
  Sender: FDA-Public Use
  Company Number: US-BAYER-200813411BCC

PATIENT
  Age: 52 Year
  Sex: Male
  Weight: 113 kg

DRUGS (2)
  1. ALEVE [Suspect]
     Indication: PAIN
     Dosage: TOTAL DAILY DOSE: 220 MG  UNIT DOSE: 220 MG
     Route: 048
     Dates: start: 20080812
  2. INSULIN [Concomitant]

REACTIONS (6)
  - NAUSEA [None]
  - SWOLLEN TONGUE [None]
  - TENDERNESS [None]
  - URTICARIA [None]
  - VISION BLURRED [None]
  - VOMITING [None]
